FAERS Safety Report 4374419-1 (Version None)
Quarter: 2004Q2

REPORT INFORMATION
  Report Type: 
  Country: None (occurrence: None)
  Receive Date: 20040602
  Receipt Date: 20040322
  Transmission Date: 20050107
  Serious: No
  Sender: FDA-Public Use
  Company Number: 200416440BWH

PATIENT
  Age: 71 Year
  Sex: Male
  Weight: 97.5234 kg

DRUGS (10)
  1. LEVITRA [Suspect]
     Indication: ERECTILE DYSFUNCTION
     Dosage: 10 MG, TOTAL DAILY, ORAL
     Route: 048
     Dates: start: 20040301
  2. LEVITRA [Suspect]
     Indication: ERECTILE DYSFUNCTION
     Dosage: 10 MG, TOTAL DAILY, ORAL
     Route: 048
     Dates: start: 20040321
  3. ADALAT CC [Concomitant]
  4. CLONIDINE HCL [Concomitant]
  5. TRIAMTERENE AND HYDROCHLOROTHIAZIDE [Concomitant]
  6. IRBESARTAN [Concomitant]
  7. LANSOPRAZOLE [Concomitant]
  8. NAPROXEN [Concomitant]
  9. TESTOSTERONE [Concomitant]
  10. CIALIS ^GLAXOSMITHKLINE^ [Concomitant]

REACTIONS (6)
  - CHEST PAIN [None]
  - ERECTILE DYSFUNCTION [None]
  - NECK PAIN [None]
  - PAIN IN EXTREMITY [None]
  - PAIN IN JAW [None]
  - TOOTHACHE [None]
